FAERS Safety Report 7487579-0 (Version None)
Quarter: 2011Q2

REPORT INFORMATION
  Report Type: 
  Country: None (occurrence: None)
  Receive Date: 20110511
  Receipt Date: 20110427
  Transmission Date: 20111010
  Serious: Yes (Death, Other)
  Sender: FDA-Public Use
  Company Number: IDA-00507

PATIENT
  Age: 46 Year
  Sex: Female

DRUGS (2)
  1. RAMIPRIL [Concomitant]
  2. PROPRANOLOL [Suspect]
     Indication: ANXIETY
     Dosage: 40 MG TID ORAL FORMULATION: TABLET
     Route: 048
     Dates: start: 20110124, end: 20110125

REACTIONS (4)
  - HYPERTENSION [None]
  - ARRHYTHMIA [None]
  - LEFT VENTRICULAR HYPERTROPHY [None]
  - CHEST PAIN [None]
